FAERS Safety Report 12253343 (Version 2)
Quarter: 2016Q2

REPORT INFORMATION
  Report Type: Spontaneous
  Country: US (occurrence: US)
  Receive Date: 20160411
  Receipt Date: 20160413
  Transmission Date: 20160815
  Serious: Yes (Other)
  Sender: FDA-Public Use
  Company Number: US-PFIZER INC-2016189102

PATIENT

DRUGS (1)
  1. ADVIL [Suspect]
     Active Substance: IBUPROFEN
     Dosage: 2 DF, 1X/DAY (2 AT BEDTIME)

REACTIONS (3)
  - Insomnia [Unknown]
  - Nephropathy [Unknown]
  - Drug ineffective [Unknown]
